FAERS Safety Report 25522608 (Version 2)
Quarter: 2025Q3

REPORT INFORMATION
  Report Type: Spontaneous
  Country: US (occurrence: US)
  Receive Date: 20250707
  Receipt Date: 20250816
  Transmission Date: 20251021
  Serious: No
  Sender: ALEXION PHARMACEUTICALS
  Company Number: US-AstraZeneca-CH-00725040A

PATIENT
  Sex: Female
  Weight: 79.378 kg

DRUGS (2)
  1. FASENRA [Suspect]
     Active Substance: BENRALIZUMAB
     Indication: Asthma
     Dosage: 30 MILLIGRAM PER MILLILITRE, Q8W
     Dates: start: 20231020, end: 20241010
  2. FASENRA [Suspect]
     Active Substance: BENRALIZUMAB

REACTIONS (1)
  - Pruritus [Unknown]
